FAERS Safety Report 19353343 (Version 1)
Quarter: 2021Q2

REPORT INFORMATION
  Report Type: Spontaneous
  Country: HR (occurrence: HR)
  Receive Date: 20210601
  Receipt Date: 20210601
  Transmission Date: 20210717
  Serious: Yes (Other)
  Sender: FDA-Public Use
  Company Number: HR-JNJFOC-20210600951

PATIENT
  Sex: Male

DRUGS (9)
  1. XARELTO [Suspect]
     Active Substance: RIVAROXABAN
     Indication: EMBOLISM VENOUS
     Dosage: 15 MG, BID
     Route: 048
  2. PHOLCODIN [Concomitant]
     Dosage: UNK
  3. SUPPORTAN [Concomitant]
     Dosage: UNK
  4. LEXAURIN [Concomitant]
     Active Substance: BROMAZEPAM
     Dosage: UNK
  5. NORMABEL [Concomitant]
     Active Substance: DIAZEPAM
     Dosage: UNK
  6. SANVAL [Concomitant]
     Active Substance: ZOLPIDEM TARTRATE
     Dosage: UNK
  7. XARELTO [Suspect]
     Active Substance: RIVAROXABAN
     Indication: EMBOLISM VENOUS
     Dosage: 20 MG, QD
     Route: 048
     Dates: start: 201812, end: 202104
  8. MEGOSTAT [Concomitant]
     Active Substance: MEGESTROL ACETATE
     Dosage: UNK
  9. ANDOL [Concomitant]
     Active Substance: ASPIRIN
     Dosage: 100 MG, UNK

REACTIONS (1)
  - Metastases to central nervous system [Unknown]

NARRATIVE: CASE EVENT DATE: 202102
